FAERS Safety Report 7091172-1 (Version None)
Quarter: 2010Q4

REPORT INFORMATION
  Report Type: 
  Country: None (occurrence: None)
  Receive Date: 20101105
  Receipt Date: 20101105
  Transmission Date: 20110411
  Serious: Yes (Other)
  Sender: FDA-Public Use
  Company Number: None

PATIENT
  Age: 49 Year
  Sex: Female
  Weight: 80.7403 kg

DRUGS (3)
  1. OXYCONTIN [Suspect]
     Indication: BACK PAIN
     Dosage: 1 TABLET EVERY 8 HOURS PO
     Route: 048
     Dates: start: 20101020, end: 20101104
  2. OXYCONTIN [Suspect]
     Indication: PAIN
     Dosage: 1 TABLET EVERY 8 HOURS PO
     Route: 048
     Dates: start: 20101020, end: 20101104
  3. OXYCONTIN [Suspect]
     Indication: PAIN IN EXTREMITY
     Dosage: 1 TABLET EVERY 8 HOURS PO
     Route: 048
     Dates: start: 20101020, end: 20101104

REACTIONS (7)
  - DRUG INEFFECTIVE [None]
  - EMOTIONAL DISTRESS [None]
  - NAUSEA [None]
  - PAIN [None]
  - PRODUCT FORMULATION ISSUE [None]
  - STRESS [None]
  - VOMITING [None]
